FAERS Safety Report 21749322 (Version 2)
Quarter: 2022Q4

REPORT INFORMATION
  Report Type: Report from Study
  Country: US (occurrence: US)
  Receive Date: 20221219
  Receipt Date: 20221221
  Transmission Date: 20230112
  Serious: Yes (Hospitalization, Other)
  Sender: FDA-Public Use
  Company Number: US-ABBVIE-4225792

PATIENT
  Sex: Female

DRUGS (2)
  1. SKYRIZI [Suspect]
     Active Substance: RISANKIZUMAB-RZAA
     Indication: Psoriasis
     Dosage: WEEK 0 THE START DATE OF EVENT PSORIASIS WAS BAD, ABSCESS ON RIGHT HAND THAT WAS DOWN TO BONE/JOI...
     Route: 058
     Dates: start: 20221028, end: 20221028
  2. SKYRIZI [Suspect]
     Active Substance: RISANKIZUMAB-RZAA
     Indication: Psoriatic arthropathy

REACTIONS (2)
  - Abscess limb [Unknown]
  - Psoriasis [Not Recovered/Not Resolved]
